FAERS Safety Report 9898479 (Version 1)
Quarter: 2014Q1

REPORT INFORMATION
  Report Type: Spontaneous
  Country: FR (occurrence: FR)
  Receive Date: 20140214
  Receipt Date: 20140214
  Transmission Date: 20141002
  Serious: Yes (Hospitalization)
  Sender: FDA-Public Use
  Company Number: FR-B.I. PHARMACEUTICALS,INC./RIDGEFIELD-2014-BI-06328FF

PATIENT
  Age: 59 Year
  Sex: Male

DRUGS (5)
  1. MECIR [Suspect]
     Indication: PRODUCT USED FOR UNKNOWN INDICATION
     Dosage: 0.4 MG
     Route: 048
     Dates: start: 20140104, end: 20140111
  2. PROFENID [Suspect]
     Indication: PRODUCT USED FOR UNKNOWN INDICATION
     Dosage: 50 MG
     Route: 042
     Dates: start: 20140104, end: 20140111
  3. OFLOCET [Suspect]
     Indication: PRODUCT USED FOR UNKNOWN INDICATION
     Dates: start: 20140104, end: 20140111
  4. DAFALGAN [Concomitant]
     Dates: start: 20140104
  5. INEXIUM [Concomitant]
     Dates: start: 20140104

REACTIONS (1)
  - Vascular purpura [Not Recovered/Not Resolved]
